FAERS Safety Report 6006895-2 (Version None)
Quarter: 2008Q4

REPORT INFORMATION
  Report Type: 
  Country: None (occurrence: None)
  Receive Date: 20081217
  Receipt Date: 20081209
  Transmission Date: 20090506
  Serious: Yes (Life-Threatening, Hospitalization)
  Sender: FDA-Public Use
  Company Number: CH-ROCHE-572135

PATIENT
  Sex: Male
  Weight: 77 kg

DRUGS (20)
  1. METHOXY POLYETHYLENE GLYCOL-EPOETIN BETA [Suspect]
     Route: 042
     Dates: start: 20080131
  2. METHOXY POLYETHYLENE GLYCOL-EPOETIN BETA [Suspect]
     Dosage: FORM: INJECTION.
     Route: 042
  3. DARBEPOETIN ALFA [Suspect]
     Route: 042
  4. LISINOPRIL [Concomitant]
     Indication: HYPERTENSION
     Dates: start: 20050906
  5. AMLODIPINE [Concomitant]
     Indication: HYPERTENSION
     Dates: start: 20061027
  6. CLOPIDOGREL [Concomitant]
     Dates: start: 20040518, end: 20081201
  7. DREISAVIT N [Concomitant]
     Indication: DIALYSIS
     Dates: start: 20040515
  8. LEVOTHYROXINE SODIUM [Concomitant]
     Indication: HYPOTHYROIDISM
     Dosage: DRUG:LEVOTHYROXIN
     Dates: start: 20060321
  9. CALCITRIOL [Concomitant]
     Indication: HYPERPARATHYROIDISM
     Dates: start: 20070901
  10. COSOPT [Concomitant]
     Indication: GLAUCOMA
     Dosage: DOSE FORM:EYE DROPS
     Dates: start: 20070301
  11. PANTOZOL [Concomitant]
     Indication: GASTRITIS
     Dates: start: 20070401
  12. SEVELAMER [Concomitant]
     Dates: start: 20070419, end: 20080104
  13. CALCIUMACETAT [Concomitant]
     Dosage: DRUG ALSO REPORTED AS CALCIUM ACETATE
     Dates: start: 20070426, end: 20080108
  14. TRIATEC [Concomitant]
     Dates: start: 20050906, end: 20081204
  15. ELTROXIN [Concomitant]
     Dosage: DRUG: ELTROXIN TBL.
     Dates: start: 20060321
  16. DAFALGAN [Concomitant]
     Dates: start: 20080814
  17. NOVALGINE [Concomitant]
     Dates: start: 20081125
  18. TRAVOPROSTUM [Concomitant]
     Route: 047
     Dates: start: 20070301
  19. TRAMADOL HCL [Concomitant]
     Dates: start: 20081125
  20. LIQUAEMIN INJ [Concomitant]
     Dates: start: 20081125

REACTIONS (2)
  - COLITIS ISCHAEMIC [None]
  - GASTROINTESTINAL HAEMORRHAGE [None]
